FAERS Safety Report 5096577-6 (Version None)
Quarter: 2006Q3

REPORT INFORMATION
  Report Type: 
  Country: None (occurrence: None)
  Receive Date: 20060830
  Receipt Date: 20060817
  Transmission Date: 20061208
  Serious: Yes (Hospitalization, Other)
  Sender: FDA-Public Use
  Company Number: 2006101763

PATIENT
  Age: 71 Year
  Sex: Female
  Weight: 34.0198 kg

DRUGS (2)
  1. ZYVOX [Suspect]
     Indication: DEVICE RELATED INFECTION
     Dosage: 1200 MG (1200 MG), INTRAVENOUS
     Dates: start: 20050721, end: 20050731
  2. RIFAMPICIN [Concomitant]

REACTIONS (3)
  - BLOOD BRAIN BARRIER DEFECT [None]
  - REVERSIBLE POSTERIOR LEUKOENCEPHALOPATHY SYNDROME [None]
  - THERAPEUTIC RESPONSE DECREASED [None]
